FAERS Safety Report 7190282-8 (Version None)
Quarter: 2010Q4

REPORT INFORMATION
  Report Type: 
  Country: None (occurrence: None)
  Receive Date: 20101223
  Receipt Date: 20101216
  Transmission Date: 20110411
  Serious: No
  Sender: FDA-Public Use
  Company Number: US-BIOGENIDEC-2010BI044260

PATIENT
  Age: 41 Year
  Sex: Female

DRUGS (3)
  1. AVONEX [Suspect]
     Indication: MULTIPLE SCLEROSIS
     Route: 030
     Dates: start: 19981211, end: 20050713
  2. VESICARE [Concomitant]
     Indication: URINARY INCONTINENCE
  3. GABAPENTIN [Concomitant]
     Indication: MUSCULAR WEAKNESS

REACTIONS (1)
  - STRESS [None]
